FAERS Safety Report 5274592-7 (Version None)
Quarter: 2007Q1

REPORT INFORMATION
  Report Type: 
  Country: None (occurrence: None)
  Receive Date: 20070320
  Receipt Date: 20070305
  Transmission Date: 20070707
  Serious: Yes (Hospitalization)
  Sender: FDA-Public Use
  Company Number: MEDI-0004288

PATIENT
  Age: 7 Month
  Sex: 0
  Weight: 4 kg

DRUGS (1)
  1. SYNAGIS [Suspect]
     Indication: ANTIVIRAL PROPHYLAXIS
     Dosage: 1 IN 1 M, INTRAMUSCULAR
     Route: 030
     Dates: start: 20051016, end: 20051115

REACTIONS (3)
  - GASTROENTERITIS [None]
  - LARYNGITIS [None]
  - PSYCHOMOTOR RETARDATION [None]
